FAERS Safety Report 23202910 (Version 2)
Quarter: 2023Q4

REPORT INFORMATION
  Report Type: Spontaneous
  Country: US (occurrence: US)
  Receive Date: 20231120
  Receipt Date: 20231128
  Transmission Date: 20240109
  Serious: Yes (Hospitalization, Other)
  Sender: FDA-Public Use
  Company Number: US-GLAXOSMITHKLINE-US2023156918

PATIENT

DRUGS (1)
  1. NUCALA [Suspect]
     Active Substance: MEPOLIZUMAB
     Indication: Product used for unknown indication
     Dosage: UNK
     Dates: start: 20231113, end: 20231113

REACTIONS (3)
  - Pharyngeal polyp [Unknown]
  - Nasal polyps [Unknown]
  - Sinus operation [Unknown]

NARRATIVE: CASE EVENT DATE: 20231113
